FAERS Safety Report 12887116 (Version 7)
Quarter: 2017Q1

REPORT INFORMATION
  Report Type: Spontaneous
  Country: US (occurrence: US)
  Receive Date: 20161026
  Receipt Date: 20170316
  Transmission Date: 20170428
  Serious: Yes (Death, Hospitalization)
  Sender: FDA-Public Use
  Company Number: US-ACTELION-A-US2016-144258

PATIENT
  Age: 28 Year
  Sex: Male

DRUGS (3)
  1. VELETRI [Suspect]
     Active Substance: EPOPROSTENOL
     Indication: PULMONARY HYPERTENSION
     Dosage: 9.2 NG/KG, PER MIN
     Route: 042
     Dates: start: 201608
  2. OPSUMIT [Suspect]
     Active Substance: MACITENTAN
     Indication: PULMONARY HYPERTENSION
     Dosage: 10 MG, QD
     Route: 048
     Dates: start: 201611
  3. REVATIO [Concomitant]
     Active Substance: SILDENAFIL CITRATE

REACTIONS (8)
  - Acute kidney injury [Unknown]
  - Death [Fatal]
  - Hypoxia [Recovering/Resolving]
  - Dyspnoea [Recovering/Resolving]
  - Fluid overload [Unknown]
  - Oxygen supplementation [Unknown]
  - Oedema peripheral [Unknown]
  - Tachycardia [Recovering/Resolving]

NARRATIVE: CASE EVENT DATE: 20161016
